FAERS Safety Report 4281912-9 (Version None)
Quarter: 2004Q1

REPORT INFORMATION
  Report Type: 
  Country: None (occurrence: None)
  Receive Date: 20040128
  Receipt Date: 20040120
  Transmission Date: 20041129
  Serious: Yes (Death, Hospitalization)
  Sender: FDA-Public Use
  Company Number: 200400816

PATIENT
  Age: 5 Month
  Sex: Female

DRUGS (2)
  1. TYLENOL [Suspect]
     Indication: ABDOMINAL PAIN
     Dosage: 500 MG PO
     Route: 048
     Dates: start: 20030103
  2. TYLENOL [Suspect]
     Indication: PYREXIA
     Dosage: 500 MG PO
     Route: 048
     Dates: start: 20030103

REACTIONS (3)
  - DRUG TOXICITY [None]
  - HEPATIC FAILURE [None]
  - PRESCRIBED OVERDOSE [None]
